FAERS Safety Report 11115568 (Version 1)
Quarter: 2015Q2

REPORT INFORMATION
  Report Type: Report from Study
  Country: AR (occurrence: AR)
  Receive Date: 20150515
  Receipt Date: 20150515
  Transmission Date: 20150821
  Serious: Yes (Hospitalization)
  Sender: FDA-Public Use
  Company Number: PHHY2015AR033481

PATIENT
  Age: 65 Year
  Sex: Male
  Weight: 76.8 kg

DRUGS (5)
  1. MEPREDNISONA [Concomitant]
     Active Substance: MEPREDNISONE
     Indication: IMMUNOSUPPRESSION
     Dosage: 600 MG, UNK
     Route: 065
  2. MYFORTIC [Suspect]
     Active Substance: MYCOPHENOLATE SODIUM
     Indication: KIDNEY TRANSPLANT REJECTION
     Dosage: 720 MG, QD
     Route: 048
     Dates: end: 20150428
  3. NO TREATMENT RECEIVED [Suspect]
     Active Substance: UNSPECIFIED INGREDIENT
     Indication: PRODUCT USED FOR UNKNOWN INDICATION
     Route: 065
  4. TACROLIMUS. [Concomitant]
     Active Substance: TACROLIMUS
     Indication: IMMUNOSUPPRESSION
     Dosage: 3 MG, UNK
     Route: 065
  5. DELTISON                           /00201501/ [Concomitant]
     Indication: IMMUNOSUPPRESSION
     Dosage: 8 MG, UNK
     Route: 065

REACTIONS (3)
  - Nephrocalcinosis [Not Recovered/Not Resolved]
  - Acute kidney injury [Not Recovered/Not Resolved]
  - Chronic kidney disease [Not Recovered/Not Resolved]

NARRATIVE: CASE EVENT DATE: 20150308
